FAERS Safety Report 9074825 (Version 2)
Quarter: 2013Q1

REPORT INFORMATION
  Report Type: Spontaneous
  Country: US (occurrence: US)
  Receive Date: 20130129
  Receipt Date: 20130130
  Transmission Date: 20140127
  Serious: Yes (Other)
  Sender: FDA-Public Use
  Company Number: US-BAYER-2013-009255

PATIENT
  Sex: Female

DRUGS (1)
  1. ASP SEVERE SINUS CONGESTION ALLERGY + COUGH LG [Suspect]

REACTIONS (3)
  - Visual acuity reduced [Recovering/Resolving]
  - Lacrimation increased [Recovering/Resolving]
  - Eye swelling [Recovering/Resolving]
